FAERS Safety Report 4497666-7 (Version None)
Quarter: 2004Q4

REPORT INFORMATION
  Report Type: 
  Country: None (occurrence: None)
  Receive Date: 20041108
  Receipt Date: 20041026
  Transmission Date: 20050328
  Serious: Yes (Death)
  Sender: FDA-Public Use
  Company Number: US-JNJFOC-20040503280

PATIENT
  Age: 91 Year
  Sex: Female
  Weight: 59.88 kg

DRUGS (6)
  1. DURAGESIC [Suspect]
     Route: 062
  2. DURAGESIC [Suspect]
     Route: 062
  3. PREDNISONE [Concomitant]
  4. VIOXX [Concomitant]
  5. VICODIN [Concomitant]
  6. VICODIN [Concomitant]

REACTIONS (9)
  - ASPIRATION BRONCHIAL [None]
  - DYSPNOEA EXERTIONAL [None]
  - FATIGUE [None]
  - LOSS OF CONSCIOUSNESS [None]
  - NAUSEA [None]
  - OEDEMA PERIPHERAL [None]
  - PNEUMONIA [None]
  - THERAPY NON-RESPONDER [None]
  - VOMITING [None]
